FAERS Safety Report 5052830-3 (Version None)
Quarter: 2006Q3

REPORT INFORMATION
  Report Type: 
  Country: None (occurrence: None)
  Receive Date: 20060712
  Receipt Date: 20060628
  Transmission Date: 20061208
  Serious: Yes (Other)
  Sender: FDA-Public Use
  Company Number: 2005134666

PATIENT
  Age: 45 Year
  Sex: Male
  Weight: 145.151 kg

DRUGS (3)
  1. BEXTRA [Suspect]
     Indication: ARTHRITIS
  2. CELEBREX [Suspect]
     Indication: ARTHRITIS
  3. VIOXX [Suspect]
     Indication: ILL-DEFINED DISORDER

REACTIONS (3)
  - CARDIOVASCULAR DISORDER [None]
  - STEVENS-JOHNSON SYNDROME [None]
  - THROMBOSIS [None]
